FAERS Safety Report 9904541 (Version 2)
Quarter: 2014Q1

REPORT INFORMATION
  Report Type: Report from Study
  Country: US (occurrence: US)
  Receive Date: 20140218
  Receipt Date: 20140226
  Transmission Date: 20141002
  Serious: Yes (Other)
  Sender: FDA-Public Use
  Company Number: US-PFIZER INC-2014043440

PATIENT
  Age: 54 Year
  Sex: Female
  Weight: 60.32 kg

DRUGS (5)
  1. TOFACITINIB CITRATE [Suspect]
     Indication: RHEUMATOID ARTHRITIS
     Dosage: 5 MG, 2X/DAY
     Route: 048
     Dates: start: 20070328
  2. HYDROCHLOROTHIAZIDE [Concomitant]
     Indication: HYPERTENSION
     Dosage: 37.5 MG, 1X/DAY
     Route: 048
     Dates: start: 20070416
  3. METHOTREXATE [Concomitant]
     Indication: RHEUMATOID ARTHRITIS
     Dosage: 10 MG, WEEKLY
     Route: 048
     Dates: start: 20060419
  4. IBUPROFEN [Concomitant]
     Indication: RHEUMATOID ARTHRITIS
     Dosage: 800 MG, 2X/DAY
     Route: 048
     Dates: start: 20060208
  5. FOLIC ACID [Concomitant]
     Indication: NUTRITIONAL SUPPLEMENTATION
     Dosage: 1 MG, 1X/DAY
     Route: 048
     Dates: start: 20060419

REACTIONS (1)
  - Basal cell carcinoma [Recovered/Resolved]
